FAERS Safety Report 16883828 (Version 1)
Quarter: 2019Q4

REPORT INFORMATION
  Report Type: Spontaneous
  Country: US (occurrence: US)
  Receive Date: 20191004
  Receipt Date: 20191004
  Transmission Date: 20200122
  Serious: Yes (Hospitalization)
  Sender: FDA-Public Use
  Company Number: US-ROCHE-2431108

PATIENT
  Sex: Female

DRUGS (1)
  1. ACTEMRA [Suspect]
     Active Substance: TOCILIZUMAB
     Indication: RHEUMATOID ARTHRITIS
     Dosage: INJECT 1 PRE-FILLED SYRINGE (162) SUBCUTANEOUSLY ONCE WEEKLY.?ON 25/SEP/2019, MOST RECENT DOSE PRIOR
     Route: 058

REACTIONS (1)
  - Myocardial infarction [Unknown]
